FAERS Safety Report 13145229 (Version 1)
Quarter: 2017Q1

REPORT INFORMATION
  Report Type: Report from Study
  Country: AU (occurrence: AU)
  Receive Date: 20170124
  Receipt Date: 20170124
  Transmission Date: 20170428
  Serious: Yes (Hospitalization, Other)
  Sender: FDA-Public Use
  Company Number: AU-REGENERON PHARMACEUTICALS, INC.-2017-10823

PATIENT

DRUGS (3)
  1. EYLEA [Suspect]
     Active Substance: AFLIBERCEPT
     Dosage: 2 MG, Q2MON, RIGHT EYE
     Route: 031
     Dates: start: 20170105
  2. EYLEA [Suspect]
     Active Substance: AFLIBERCEPT
     Dosage: 2 MG, Q2MON, LEFT EYE
     Route: 031
     Dates: start: 20170105
  3. EYLEA [Suspect]
     Active Substance: AFLIBERCEPT
     Indication: NEOVASCULAR AGE-RELATED MACULAR DEGENERATION
     Dosage: 2 MG
     Route: 031
     Dates: start: 20150312

REACTIONS (4)
  - Eye haemorrhage [Unknown]
  - Malignant melanoma [Recovered/Resolved]
  - Vision blurred [Unknown]
  - Malignant melanoma [Recovering/Resolving]

NARRATIVE: CASE EVENT DATE: 201610
